FAERS Safety Report 11854396 (Version 1)
Quarter: 2015Q4

REPORT INFORMATION
  Report Type: Report from Study
  Country: GB (occurrence: GB)
  Receive Date: 20151221
  Receipt Date: 20151221
  Transmission Date: 20160305
  Serious: Yes (Hospitalization, Other)
  Sender: FDA-Public Use
  Company Number: GB-ALEXION PHARMACEUTICALS INC-A201505069

PATIENT
  Age: 28 Year
  Sex: Female

DRUGS (2)
  1. SOLIRIS [Suspect]
     Active Substance: ECULIZUMAB
     Indication: PAROXYSMAL NOCTURNAL HAEMOGLOBINURIA
     Dosage: 900 MG, Q2W
     Route: 042
  2. WARFARIN [Suspect]
     Active Substance: WARFARIN
     Indication: INTERNATIONAL NORMALISED RATIO ABNORMAL
     Dosage: 6 MG, UNK
     Route: 065

REACTIONS (2)
  - International normalised ratio abnormal [Recovered/Resolved]
  - Wound secretion [Unknown]

NARRATIVE: CASE EVENT DATE: 201511
